FAERS Safety Report 4654892-1 (Version None)
Quarter: 2005Q2

REPORT INFORMATION
  Report Type: 
  Country: None (occurrence: None)
  Receive Date: 20050506
  Receipt Date: 20040817
  Transmission Date: 20051028
  Serious: No
  Sender: FDA-Public Use
  Company Number: A0523192A

PATIENT
  Age: 75 Year
  Sex: Female

DRUGS (6)
  1. AMOXICILLIN [Suspect]
     Indication: CYST
     Route: 048
     Dates: start: 20040811, end: 20040812
  2. PREVACID [Concomitant]
  3. ALAVERT [Concomitant]
  4. GARLIC [Concomitant]
     Route: 048
  5. VITAMINS [Concomitant]
  6. CALCIUM GLUCONATE [Concomitant]

REACTIONS (1)
  - ABDOMINAL PAIN UPPER [None]
